FAERS Safety Report 9554414 (Version 2)
Quarter: 2013Q4

REPORT INFORMATION
  Report Type: Report from Study
  Country: IT (occurrence: IT)
  Receive Date: 20130925
  Receipt Date: 20131025
  Transmission Date: 20140711
  Serious: Yes (Hospitalization)
  Sender: FDA-Public Use
  Company Number: IT-CELGENEUS-083-C4047-13093511

PATIENT
  Age: 53 Year
  Sex: Male
  Weight: 80 kg

DRUGS (10)
  1. CC-4047 [Suspect]
     Indication: PLASMA CELL MYELOMA
     Route: 048
  2. DEXAMETHASONE [Suspect]
     Route: 065
  3. PANTOPRAZOLE [Concomitant]
     Indication: PROPHYLAXIS
     Dosage: 40 MILLIGRAM
     Route: 002
     Dates: start: 20121217
  4. BACTRIM [Concomitant]
     Indication: INFECTION PROPHYLAXIS
     Dosage: 800+160 MG
     Route: 002
     Dates: start: 20121217, end: 20130819
  5. ACICLOVIR [Concomitant]
     Indication: PROPHYLAXIS
     Dosage: 2400 MILLIGRAM
     Route: 002
     Dates: start: 20121217
  6. ALLOPURINOL [Concomitant]
     Indication: PROPHYLAXIS
     Dosage: 300 MILLIGRAM
     Route: 002
     Dates: start: 20130123
  7. EPREX [Concomitant]
     Indication: ANAEMIA
     Route: 041
     Dates: start: 20130802
  8. UNIPRIL [Concomitant]
     Indication: HYPERTENSION
     Dosage: 10 IU (INTERNATIONAL UNIT)
     Route: 002
     Dates: start: 201107
  9. CARVEDILOL [Concomitant]
     Indication: HYPERTENSION
     Dosage: 12.5 IU (INTERNATIONAL UNIT)
     Route: 002
     Dates: start: 201107
  10. CEFTRIAXONE [Concomitant]
     Indication: CHOLECYSTITIS
     Dosage: 2 GRAM
     Route: 041
     Dates: start: 20130810, end: 20130816

REACTIONS (1)
  - Soft tissue infection [Not Recovered/Not Resolved]
